FAERS Safety Report 5422928-6 (Version None)
Quarter: 2007Q3

REPORT INFORMATION
  Report Type: 
  Country: None (occurrence: None)
  Receive Date: 20070822
  Receipt Date: 20070810
  Transmission Date: 20080115
  Serious: Yes (Hospitalization)
  Sender: FDA-Public Use
  Company Number: SE-PFIZER INC-2007066253

PATIENT
  Sex: Female

DRUGS (4)
  1. DALACIN [Suspect]
     Indication: INFECTION
     Route: 048
  2. FLUCLOXACILLIN [Concomitant]
  3. CEFADROXIL [Concomitant]
  4. INSULIN [Concomitant]

REACTIONS (1)
  - VASCULITIS [None]
